FAERS Safety Report 7898526-1 (Version None)
Quarter: 2011Q4

REPORT INFORMATION
  Report Type: 
  Country: None (occurrence: None)
  Receive Date: 20111101
  Receipt Date: 20101229
  Transmission Date: 20120403
  Serious: Yes (Hospitalization, Other)
  Sender: FDA-Public Use
  Company Number: 261690USA

PATIENT
  Age: 67 Year
  Sex: Male

DRUGS (10)
  1. BECLOMETHASONE DIPROPIONATE [Suspect]
     Dosage: 40 MG (80 MG, 1 IN 2 D)
     Route: 055
  2. QUININE SULFATE [Concomitant]
  3. OXYGEN [Concomitant]
  4. CLONAZEPAM [Concomitant]
  5. BREVA [Concomitant]
  6. IPRATROPIUM BROMIDE [Concomitant]
  7. ZILEUTON [Concomitant]
  8. ALBUTEROL SULFATE AUTOHALER [Concomitant]
  9. BECLOMETHASONE DIPROPIONATE [Suspect]
     Indication: LUNG DISORDER
     Dosage: 320 MCG (160 MCG, 2 IN 1 D)
     Route: 055
  10. AMLODIPINE [Concomitant]

REACTIONS (4)
  - CHEST DISCOMFORT [None]
  - BRONCHOSPASM PARADOXICAL [None]
  - HALO VISION [None]
  - MIGRAINE [None]
